FAERS Safety Report 24326419 (Version 1)
Quarter: 2024Q3

REPORT INFORMATION
  Report Type: Spontaneous
  Country: CN (occurrence: CN)
  Receive Date: 20240917
  Receipt Date: 20240917
  Transmission Date: 20241017
  Serious: Yes (Life-Threatening, Hospitalization)
  Sender: AMGEN
  Company Number: CN-AMGEN-CHNSP2024184354

PATIENT
  Age: 10 Year
  Sex: Female

DRUGS (3)
  1. BLINCYTO [Suspect]
     Active Substance: BLINATUMOMAB
     Indication: Acute lymphocytic leukaemia
     Dosage: 17.5 MICROGRAM, QD, DRIP
     Route: 042
     Dates: start: 20240829, end: 20240830
  2. BLINCYTO [Suspect]
     Active Substance: BLINATUMOMAB
     Dosage: 17.5 MICROGRAM, QD, DRIP
     Route: 042
     Dates: start: 20240902, end: 20240911
  3. SODIUM CHLORIDE [Concomitant]
     Active Substance: SODIUM CHLORIDE
     Dosage: 250 MILLILITER, QD
     Route: 042
     Dates: start: 20240902, end: 20240911

REACTIONS (1)
  - Liver injury [Recovering/Resolving]

NARRATIVE: CASE EVENT DATE: 20240904
